FAERS Safety Report 10310451 (Version 1)
Quarter: 2014Q3

REPORT INFORMATION
  Report Type: Spontaneous
  Country: US (occurrence: US)
  Receive Date: 20140717
  Receipt Date: 20140717
  Transmission Date: 20150326
  Serious: Yes (Hospitalization, Other)
  Sender: FDA-Public Use
  Company Number: US-009507513-1407USA007143

PATIENT
  Sex: Male

DRUGS (1)
  1. FELBAMATE. [Suspect]
     Active Substance: FELBAMATE
     Indication: CONVULSION
     Dosage: 3000 MG (600 MG, 5 IN 1 D)
     Route: 048

REACTIONS (4)
  - Convulsion [Unknown]
  - Condition aggravated [Unknown]
  - Drug effect incomplete [Unknown]
  - Drug dose omission [Unknown]
